FAERS Safety Report 23647184 (Version 1)
Quarter: 2024Q1

REPORT INFORMATION
  Report Type: Spontaneous
  Country: US (occurrence: None)
  Receive Date: 20240318
  Receipt Date: 20240318
  Transmission Date: 20240410
  Serious: Yes (Hospitalization)
  Sender: FDA-Public Use
  Company Number: None

PATIENT
  Age: 54 Year
  Sex: Female
  Weight: 91.7 kg

DRUGS (1)
  1. ABECMA [Suspect]
     Active Substance: IDECABTAGENE VICLEUCEL
     Indication: Diffuse large B-cell lymphoma
     Dosage: OTHER FREQUENCY : ONCE;?
     Route: 042
     Dates: start: 20240116, end: 20240116

REACTIONS (1)
  - Cytokine release syndrome [None]

NARRATIVE: CASE EVENT DATE: 20240117
